FAERS Safety Report 8862618 (Version 1)
Quarter: 2012Q4

REPORT INFORMATION
  Report Type: 
  Country: US (occurrence: US)
  Receive Date: 20121026
  Receipt Date: 20121026
  Transmission Date: 20130627
  Serious: No
  Sender: FDA-Public Use
  Company Number: US-PFIZER INC-2012267511

PATIENT
  Sex: Male

DRUGS (3)
  1. LIPITOR [Suspect]
     Indication: HIGH CHOLESTEROL
     Dosage: UNK
     Dates: end: 2012
  2. PROCARDIA [Concomitant]
     Dosage: UNK
  3. VIAGRA [Concomitant]
     Dosage: UNK

REACTIONS (1)
  - No adverse event [Unknown]
